FAERS Safety Report 4679729-6 (Version None)
Quarter: 2005Q2

REPORT INFORMATION
  Report Type: 
  Country: None (occurrence: None)
  Receive Date: 20050602
  Receipt Date: 20050307
  Transmission Date: 20051028
  Serious: Yes (Hospitalization)
  Sender: FDA-Public Use
  Company Number: JP-ROCHE-398266

PATIENT
  Age: 6 Year
  Sex: Female

DRUGS (6)
  1. TAMIFLU [Suspect]
     Route: 048
     Dates: start: 20050224, end: 20050224
  2. TAMIFLU [Suspect]
     Route: 048
     Dates: start: 20050225, end: 20050228
  3. TAMIFLU [Suspect]
     Route: 048
     Dates: start: 20050301, end: 20050301
  4. ZITHROMAC [Suspect]
     Indication: PYREXIA
     Route: 048
     Dates: start: 20050304, end: 20050306
  5. ALEVIATIN [Suspect]
     Route: 048
     Dates: start: 20050224, end: 20050306
  6. ALEVIATIN [Suspect]
     Dosage: DOSE DECREASED
     Route: 048
     Dates: start: 20050307, end: 20050312

REACTIONS (11)
  - BONE MARROW DEPRESSION [None]
  - CONJUNCTIVAL HYPERAEMIA [None]
  - ECZEMA [None]
  - EPILEPSY [None]
  - ERYTHEMA MULTIFORME [None]
  - GRAND MAL CONVULSION [None]
  - INFECTION [None]
  - OCULOMUCOCUTANEOUS SYNDROME [None]
  - RASH [None]
  - STEVENS-JOHNSON SYNDROME [None]
  - WHITE BLOOD CELL COUNT DECREASED [None]
